FAERS Safety Report 5725279-5 (Version None)
Quarter: 2008Q2

REPORT INFORMATION
  Report Type: 
  Country: None (occurrence: None)
  Receive Date: 20080429
  Receipt Date: 20080415
  Transmission Date: 20081010
  Serious: Yes (Life-Threatening)
  Sender: FDA-Public Use
  Company Number: 2008AL001468

PATIENT
  Age: 8 Year
  Sex: Female
  Weight: 33 kg

DRUGS (3)
  1. HYDROCORTISONE 1%-P CREAM [Suspect]
     Indication: HYPOPITUITARISM
     Dosage: 5 MG; QD
     Dates: start: 19991018
  2. LEVOTHYROXINE SODIUM [Concomitant]
  3. HUMATROPE [Concomitant]

REACTIONS (1)
  - ASTROCYTOMA [None]
